FAERS Safety Report 17959378 (Version 1)
Quarter: 2020Q2

REPORT INFORMATION
  Report Type: Spontaneous
  Country: US (occurrence: US)
  Receive Date: 20200630
  Receipt Date: 20200630
  Transmission Date: 20200714
  Serious: No
  Sender: FDA-Public Use
  Company Number: US-HORIZON-ACT-0250-2020

PATIENT
  Age: 32 Year
  Sex: Male

DRUGS (5)
  1. FLUOXETINE HCL [Concomitant]
     Active Substance: FLUOXETINE HYDROCHLORIDE
  2. BIOTIN-D [Concomitant]
  3. ACTIMMUNE [Suspect]
     Active Substance: INTERFERON GAMMA-1B
     Indication: PRODUCT USED FOR UNKNOWN INDICATION
     Dosage: 0.5 ML (100 MCG) INJECT UNDER THE SKIN THREE TIMES A WEEK
     Route: 058
  4. BENADRYL [Concomitant]
     Active Substance: DIPHENHYDRAMINE HYDROCHLORIDE
  5. ALLEGRA-D [Concomitant]
     Active Substance: FEXOFENADINE\PSEUDOEPHEDRINE

REACTIONS (3)
  - Headache [Unknown]
  - Product distribution issue [Unknown]
  - Inappropriate schedule of product administration [Unknown]
